FAERS Safety Report 5059428-1 (Version None)
Quarter: 2006Q3

REPORT INFORMATION
  Report Type: 
  Country: None (occurrence: None)
  Receive Date: 20060718
  Receipt Date: 20060705
  Transmission Date: 20061208
  Serious: Yes (Life-Threatening)
  Sender: FDA-Public Use
  Company Number: 29356

PATIENT
  Age: 70 Year
  Sex: Male

DRUGS (5)
  1. TAMBOCOR [Suspect]
     Indication: ATRIAL FIBRILLATION
     Dosage: 100 MG, ORAL
     Route: 048
     Dates: start: 20060127, end: 20060404
  2. BEPRICOR [Suspect]
     Indication: ATRIAL FIBRILLATION
     Dosage: 100 MG, ORAL
     Route: 048
     Dates: start: 20060209, end: 20060404
  3. ARTIST [Suspect]
     Indication: ATRIAL FIBRILLATION
     Dosage: 5 MG; ORAL
     Route: 048
     Dates: start: 20060127, end: 20060322
  4. MAINTATE [Concomitant]
  5. WARFARIN SODIUM [Concomitant]

REACTIONS (5)
  - CARDIAC FAILURE [None]
  - HAEMOPTYSIS [None]
  - INTERSTITIAL LUNG DISEASE [None]
  - LUNG DISORDER [None]
  - PULMONARY CONGESTION [None]
